FAERS Safety Report 9126004 (Version 1)
Quarter: 2013Q1

REPORT INFORMATION
  Report Type: Spontaneous
  Country: DK (occurrence: DK)
  Receive Date: 20130117
  Receipt Date: 20130117
  Transmission Date: 20140127
  Serious: Yes (Other)
  Sender: FDA-Public Use
  Company Number: DK-JNJFOC-20130107335

PATIENT
  Age: 27 Year
  Sex: Female
  Weight: 65 kg

DRUGS (4)
  1. CILEST [Suspect]
     Indication: CONTRACEPTION
     Dosage: 35 MICROGRAM ETHINYLESTRADIOL/250 MICROGRAM NORGESTIMATE
     Route: 048
  2. LAMOTRIGINE [Interacting]
     Indication: EPILEPSY
     Dosage: DOSE INCREASED TO 700 MG DURING VISIT 7
     Route: 065
  3. LAMOTRIGINE [Interacting]
     Indication: EPILEPSY
     Dosage: TWO EQUAL DOSES TAKEN AT 08:00 AND 20:00 HOURS, DOSE AT VISIT 4: 600MG
     Route: 065
  4. PLACEBO [Suspect]
     Indication: CONTRACEPTION
     Route: 048

REACTIONS (3)
  - Convulsion [Unknown]
  - Drug level decreased [Unknown]
  - Drug interaction [Unknown]
